FAERS Safety Report 8506153-8 (Version None)
Quarter: 2012Q3

REPORT INFORMATION
  Report Type: 
  Country: None (occurrence: None)
  Receive Date: 20120712
  Receipt Date: 20120629
  Transmission Date: 20120928
  Serious: Yes (Other)
  Sender: FDA-Public Use
  Company Number: JP-ROCHE-1082029

PATIENT
  Sex: Female
  Weight: 61.2 kg

DRUGS (3)
  1. HERCEPTIN [Suspect]
     Indication: BREAST CANCER
     Dosage: LAST DOSE PRIOR TO SAE 04 JUL 2005
     Route: 042
     Dates: start: 20030718
  2. HERCEPTIN [Suspect]
     Dosage: DATE OF LAST DOSE PRIOR TO SAE:04/JUL/2005
     Route: 042
  3. TRIAZOLAM [Suspect]
     Indication: PRODUCT USED FOR UNKNOWN INDICATION
     Dates: end: 20050821

REACTIONS (1)
  - CARCINOID TUMOUR OF THE GASTROINTESTINAL TRACT [None]
